FAERS Safety Report 5145019-0 (Version None)
Quarter: 2006Q4

REPORT INFORMATION
  Report Type: 
  Country: None (occurrence: None)
  Receive Date: 20061107
  Receipt Date: 20061006
  Transmission Date: 20070319
  Serious: Yes (Hospitalization)
  Sender: FDA-Public Use
  Company Number: CA-GLAXOSMITHKLINE-A0622988A

PATIENT
  Age: 56 Year
  Sex: Female
  Weight: 75 kg

DRUGS (6)
  1. LAMICTAL [Suspect]
     Route: 048
     Dates: start: 20060830
  2. RITALIN [Suspect]
     Dosage: 10MG THREE TIMES PER DAY
     Route: 048
     Dates: start: 20060711
  3. CLONAZEPAM [Concomitant]
     Dosage: 4MG AT NIGHT
  4. RISPERIDONE [Concomitant]
     Dosage: 2MG PER DAY
  5. LEVOTHYROXINE SODIUM [Concomitant]
     Dosage: .1MG PER DAY
  6. RITALIN-SR [Concomitant]
     Dosage: 20MG TWICE PER DAY

REACTIONS (26)
  - ANXIETY [None]
  - APHASIA [None]
  - BALANCE DISORDER [None]
  - COGNITIVE DISORDER [None]
  - CONFUSIONAL STATE [None]
  - COORDINATION ABNORMAL [None]
  - DEPRESSION [None]
  - DIPLOPIA [None]
  - DISORIENTATION [None]
  - DIZZINESS [None]
  - DIZZINESS POSTURAL [None]
  - DYSARTHRIA [None]
  - FALL [None]
  - HEAD INJURY [None]
  - HEMIPARESIS [None]
  - MEMORY IMPAIRMENT [None]
  - MUSCULAR WEAKNESS [None]
  - NASOPHARYNGITIS [None]
  - NECK PAIN [None]
  - NERVOUS SYSTEM DISORDER [None]
  - OBSESSIVE-COMPULSIVE DISORDER [None]
  - PARALYSIS [None]
  - RESTLESSNESS [None]
  - SPEECH DISORDER [None]
  - TRANSIENT ISCHAEMIC ATTACK [None]
  - VASOSPASM [None]
